FAERS Safety Report 25791142 (Version 1)
Quarter: 2025Q3

REPORT INFORMATION
  Report Type: Spontaneous
  Country: EU (occurrence: EU)
  Receive Date: 20250911
  Receipt Date: 20250911
  Transmission Date: 20251020
  Serious: Yes (Death)
  Sender: Atnahs Healthcare
  Company Number: EU-ATNAHS-2025-PMNV-FR000768

PATIENT

DRUGS (9)
  1. VALIUM [Suspect]
     Active Substance: DIAZEPAM
     Indication: Morbid thoughts
     Route: 065
     Dates: start: 202503, end: 20250424
  2. VALIUM [Suspect]
     Active Substance: DIAZEPAM
     Indication: Suicide attempt
  3. VALIUM [Suspect]
     Active Substance: DIAZEPAM
     Indication: Intentional self-injury
  4. LOXAPINE [Suspect]
     Active Substance: LOXAPINE
     Indication: Morbid thoughts
     Dosage: 30 MILLIGRAM EVERY 8 HOUR(S) TAKEN THREE TIMES A DAY, MORNING, NOON, AND EVENING AROUND 6 P.M., WITH
     Route: 065
  5. LOXAPINE [Suspect]
     Active Substance: LOXAPINE
     Indication: Suicide attempt
  6. LOXAPINE [Suspect]
     Active Substance: LOXAPINE
     Indication: Intentional self-injury
  7. FLUOXETINE [Concomitant]
     Active Substance: FLUOXETINE HYDROCHLORIDE
     Indication: Morbid thoughts
     Route: 065
  8. FLUOXETINE [Concomitant]
     Active Substance: FLUOXETINE HYDROCHLORIDE
     Indication: Suicide attempt
  9. FLUOXETINE [Concomitant]
     Active Substance: FLUOXETINE HYDROCHLORIDE
     Indication: Intentional self-injury

REACTIONS (4)
  - Cardiac arrest [Fatal]
  - Completed suicide [Fatal]
  - Drug ineffective [Unknown]
  - Prescribed underdose [Unknown]

NARRATIVE: CASE EVENT DATE: 20250503
